FAERS Safety Report 4325437-0 (Version None)
Quarter: 2004Q1

REPORT INFORMATION
  Report Type: 
  Country: None (occurrence: None)
  Receive Date: 20040329
  Receipt Date: 20040223
  Transmission Date: 20041129
  Serious: Yes (Other)
  Sender: FDA-Public Use
  Company Number: PHNR2004AU00702

PATIENT
  Age: 28 Year
  Sex: Male

DRUGS (2)
  1. CLOZARIL [Suspect]
     Indication: SCHIZOPHRENIA
     Dosage: 12.5 - 300 MG DAILY
     Route: 048
     Dates: start: 20040210
  2. VENLAFAXINE [Concomitant]
     Dosage: 75 MG, QD

REACTIONS (4)
  - AORTIC VALVE INCOMPETENCE [None]
  - DIASTOLIC DYSFUNCTION [None]
  - ECHOCARDIOGRAM ABNORMAL [None]
  - VOMITING [None]
